FAERS Safety Report 12368019 (Version 1)
Quarter: 2016Q2

REPORT INFORMATION
  Report Type: Spontaneous
  Country: US (occurrence: US)
  Receive Date: 20160513
  Receipt Date: 20160513
  Transmission Date: 20160815
  Serious: No
  Sender: FDA-Public Use
  Company Number: US-JNJFOC-20160421264

PATIENT
  Age: 8 Year
  Sex: Female
  Weight: 26.76 kg

DRUGS (2)
  1. CHILDRENS ZYRTEC ALLERGY [Suspect]
     Active Substance: CETIRIZINE HYDROCHLORIDE
     Indication: SEASONAL ALLERGY
     Dosage: 2 DISSOLVE TABS JUST NOW
     Route: 048
     Dates: start: 20160421
  2. CHILDRENS ZYRTEC ALLERGY [Suspect]
     Active Substance: CETIRIZINE HYDROCHLORIDE
     Indication: ACCIDENTAL EXPOSURE TO PRODUCT
     Dosage: 2 DISSOLVE TABS JUST NOW
     Route: 048
     Dates: start: 20160421

REACTIONS (1)
  - Accidental overdose [Unknown]

NARRATIVE: CASE EVENT DATE: 20160421
